FAERS Safety Report 24862697 (Version 1)
Quarter: 2025Q1

REPORT INFORMATION
  Report Type: Spontaneous
  Country: US (occurrence: US)
  Receive Date: 20250120
  Receipt Date: 20250120
  Transmission Date: 20250409
  Serious: Yes (Life-Threatening, Hospitalization)
  Sender: PHARMACEUTICAL ASSOC
  Company Number: US-PAIPHARMA-2025-US-002653

PATIENT
  Sex: Male

DRUGS (2)
  1. DIPHENHYDRAMINE HYDROCHLORIDE [Suspect]
     Active Substance: DIPHENHYDRAMINE HYDROCHLORIDE
     Indication: Intentional overdose
  2. IBUPROFEN [Suspect]
     Active Substance: IBUPROFEN

REACTIONS (4)
  - Multiple organ dysfunction syndrome [Unknown]
  - Bundle branch block right [Unknown]
  - Cardiac arrest [Unknown]
  - Coma [Unknown]
